FAERS Safety Report 21187372 (Version 1)
Quarter: 2022Q3

REPORT INFORMATION
  Report Type: Spontaneous
  Country: FR (occurrence: FR)
  Receive Date: 20220808
  Receipt Date: 20220808
  Transmission Date: 20221026
  Serious: Yes (Other)
  Sender: FDA-Public Use
  Company Number: None

PATIENT
  Age: 42 Year
  Sex: Male

DRUGS (6)
  1. VENLAFAXINE HCL [Suspect]
     Active Substance: VENLAFAXINE HYDROCHLORIDE
     Dosage: UNK
     Route: 045
  2. VENLAFAXINE HCL [Suspect]
     Active Substance: VENLAFAXINE HYDROCHLORIDE
     Dosage: UNK
     Route: 048
  3. CANNABIS SATIVA SUBSP. INDICA TOP [Suspect]
     Active Substance: CANNABIS SATIVA SUBSP. INDICA TOP
     Dosage: MORE OR LESS REGULAR SINCE ADOLESCENCE
     Route: 055
  4. VALIUM [Suspect]
     Active Substance: DIAZEPAM
     Dosage: 15 MG, DAILY
     Route: 048
  5. COCAINE [Suspect]
     Active Substance: COCAINE
     Dosage: UNK
     Route: 065
  6. HEROIN [Suspect]
     Active Substance: DIAMORPHINE
     Dosage: UNK
     Route: 055

REACTIONS (3)
  - Drug dependence [Not Recovered/Not Resolved]
  - Product use issue [Not Recovered/Not Resolved]
  - Off label use [Not Recovered/Not Resolved]
